FAERS Safety Report 18511474 (Version 1)
Quarter: 2020Q4

REPORT INFORMATION
  Report Type: Report from Study
  Country: CL (occurrence: CL)
  Receive Date: 20201117
  Receipt Date: 20201117
  Transmission Date: 20210114
  Serious: Yes (Hospitalization, Other)
  Sender: FDA-Public Use
  Company Number: CL-JNJFOC-20190112367

PATIENT
  Age: 46 Year
  Sex: Female

DRUGS (1)
  1. REMICADE [Suspect]
     Active Substance: INFLIXIMAB
     Indication: CROHN^S DISEASE
     Route: 042
     Dates: start: 201710, end: 20190725

REACTIONS (5)
  - Septic shock [Unknown]
  - Crohn^s disease [Unknown]
  - Adverse drug reaction [Unknown]
  - Clostridial infection [Unknown]
  - Pulmonary mycosis [Unknown]

NARRATIVE: CASE EVENT DATE: 20181111
